FAERS Safety Report 19785337 (Version 10)
Quarter: 2023Q2

REPORT INFORMATION
  Report Type: Spontaneous
  Country: US (occurrence: US)
  Receive Date: 20210903
  Receipt Date: 20230615
  Transmission Date: 20230721
  Serious: No
  Sender: FDA-Public Use
  Company Number: US-GLAXOSMITHKLINE-US2021AMR180608

PATIENT
  Age: 54 Year
  Sex: Female

DRUGS (3)
  1. ZEJULA [Suspect]
     Active Substance: NIRAPARIB
     Indication: Fallopian tube cancer
     Dosage: 2 DF, QD (100 MG X 2)
     Route: 048
     Dates: start: 20210807
  2. ZEJULA [Suspect]
     Active Substance: NIRAPARIB
     Dosage: 200 MG, QD
     Dates: start: 202112
  3. ZEJULA [Suspect]
     Active Substance: NIRAPARIB
     Dosage: 200 MG, QD
     Route: 048

REACTIONS (9)
  - Fatigue [Not Recovered/Not Resolved]
  - Headache [Recovered/Resolved]
  - Insomnia [Not Recovered/Not Resolved]
  - Constipation [Unknown]
  - Decreased activity [Unknown]
  - Somnolence [Unknown]
  - Blood pressure increased [Not Recovered/Not Resolved]
  - Nausea [Unknown]
  - Off label use [Unknown]

NARRATIVE: CASE EVENT DATE: 20210801
